FAERS Safety Report 17972855 (Version 1)
Quarter: 2020Q2

REPORT INFORMATION
  Report Type: Spontaneous
  Country: US (occurrence: US)
  Receive Date: 20200630
  Receipt Date: 20200630
  Transmission Date: 20200714
  Serious: Yes (Death)
  Sender: FDA-Public Use
  Company Number: None

PATIENT
  Age: 37 Year
  Sex: Male

DRUGS (1)
  1. JADENU [Suspect]
     Active Substance: DEFERASIROX
     Indication: DOUBLE HETEROZYGOUS SICKLING DISORDERS
     Route: 048
     Dates: start: 20180319

REACTIONS (1)
  - Death [None]

NARRATIVE: CASE EVENT DATE: 20200622
